FAERS Safety Report 8065374-1 (Version None)
Quarter: 2012Q1

REPORT INFORMATION
  Report Type: 
  Country: None (occurrence: None)
  Receive Date: 20120124
  Receipt Date: 20120118
  Transmission Date: 20120608
  Serious: Yes (Disabling, Other)
  Sender: FDA-Public Use
  Company Number: US-AMGEN-KDL288476

PATIENT
  Age: 59 Year
  Sex: Male
  Weight: 77.098 kg

DRUGS (27)
  1. VITAMIN B12                        /00056201/ [Concomitant]
  2. ZOCOR [Concomitant]
     Indication: HYPERCHOLESTEROLAEMIA
  3. CIALIS [Concomitant]
     Dosage: 10 MG, UNK
     Dates: start: 20060808
  4. ENBREL [Suspect]
     Indication: PSORIASIS
  5. LESCOL XL [Concomitant]
     Dosage: 80 MG, QD
     Route: 048
     Dates: start: 20060315
  6. RAPTIVA [Concomitant]
     Indication: PSORIASIS
     Dosage: ONCE WEEKLY
     Dates: end: 20061101
  7. CELEXA [Concomitant]
     Dosage: 10 MG, UNK
     Dates: start: 20060311
  8. PRAVACHOL [Concomitant]
     Indication: HYPERCHOLESTEROLAEMIA
     Dosage: 20 MG, UNK
     Route: 048
  9. ALLOPURINOL [Concomitant]
     Indication: GOUT
     Dosage: 100 MG, QD
     Route: 048
  10. AZITHROMYCIN [Concomitant]
     Dosage: 250 MG, UNK
  11. ENBREL [Suspect]
     Indication: PSORIATIC ARTHROPATHY
     Dosage: 50 MG TWICE WEEKLY
     Route: 058
     Dates: start: 20061001, end: 20090101
  12. LUXIQ [Concomitant]
     Dosage: FOR THE FACE, 0.1%
     Route: 061
     Dates: start: 20060803
  13. TACLONEX [Concomitant]
     Indication: PSORIASIS
     Route: 061
  14. LESCOL [Concomitant]
     Dosage: 80 MG, UNK
  15. WELLBUTRIN [Concomitant]
     Indication: ANXIETY
     Dosage: 100 MG, QD
     Route: 048
  16. CELEXA [Concomitant]
     Indication: DEPRESSION
     Dosage: 5 MG PER ORALLY DAILY
  17. ASPIRIN [Concomitant]
     Dosage: 325 MG, QD
     Route: 048
  18. ALLOPURINOL [Concomitant]
     Dosage: 100 MG 2 TABLETS DAILY
     Route: 048
  19. TRIAMCINOLONE [Concomitant]
     Indication: PSORIASIS
     Dosage: 0.1 %, BID
  20. CEPHALEXIN [Concomitant]
     Dosage: 250 MG, UNK
     Dates: start: 20060614
  21. RAPTIVA [Concomitant]
     Indication: PSORIATIC ARTHROPATHY
  22. HYDROCORTISONE [Concomitant]
     Indication: PSORIASIS
     Dosage: 2.5 % FOR THE FACE
     Route: 061
  23. IBUPROFEN [Concomitant]
     Indication: PSORIATIC ARTHROPATHY
  24. BUPROPION HCL [Concomitant]
     Dosage: 100 MG, UNK
  25. FISH OIL [Concomitant]
  26. OLUX [Concomitant]
     Dosage: 0.05%
  27. ACETAMINOPHEN W/ CODEINE [Concomitant]
     Dosage: 30 MG, UNK

REACTIONS (27)
  - ACTIVITIES OF DAILY LIVING IMPAIRED [None]
  - TRIGEMINAL NEURALGIA [None]
  - ANXIETY [None]
  - CERUMEN IMPACTION [None]
  - RECTAL HAEMORRHAGE [None]
  - UPPER RESPIRATORY TRACT INFECTION [None]
  - IMPAIRED WORK ABILITY [None]
  - HYPERTENSION [None]
  - HAEMORRHOIDS [None]
  - URTICARIA [None]
  - NASOPHARYNGITIS [None]
  - OROPHARYNGEAL PAIN [None]
  - PRURITUS [None]
  - SYNCOPE [None]
  - LACERATION [None]
  - DYSGEUSIA [None]
  - TINNITUS [None]
  - PINGUECULA [None]
  - ANAL HAEMORRHAGE [None]
  - ABSCESS NECK [None]
  - DEAFNESS NEUROSENSORY [None]
  - DISTURBANCE IN ATTENTION [None]
  - DEPRESSION [None]
  - POLLAKIURIA [None]
  - GOUT [None]
  - GASTROOESOPHAGEAL REFLUX DISEASE [None]
  - PRODUCTIVE COUGH [None]
